FAERS Safety Report 25833482 (Version 3)
Quarter: 2025Q4

REPORT INFORMATION
  Report Type: Spontaneous
  Country: EU (occurrence: EU)
  Receive Date: 20250922
  Receipt Date: 20251219
  Transmission Date: 20260117
  Serious: Yes (Hospitalization, Other)
  Sender: MERCK SHARP & DOHME LLC
  Company Number: None

PATIENT
  Age: 46 Year
  Sex: Female

DRUGS (5)
  1. KEYTRUDA [Suspect]
     Active Substance: PEMBROLIZUMAB
     Indication: Triple negative breast cancer
     Dosage: TIME INTERVAL: CYCLICAL: STRENGTH: 25 MG/ML
     Route: 042
     Dates: start: 20220510
  2. EPIRUBICIN [Suspect]
     Active Substance: EPIRUBICIN
     Indication: Triple negative breast cancer
     Dosage: TIME INTERVAL: CYCLICAL
     Route: 042
     Dates: start: 20220718
  3. CYCLOPHOSPHAMIDE [Suspect]
     Active Substance: CYCLOPHOSPHAMIDE
     Indication: Triple negative breast cancer
     Dosage: TIME INTERVAL: CYCLICAL
     Route: 042
     Dates: start: 20220718
  4. PACLITAXEL [Suspect]
     Active Substance: PACLITAXEL
     Indication: Triple negative breast cancer
     Dosage: TIME INTERVAL: CYCLICAL
     Dates: start: 20220510
  5. CARBOPLATIN [Suspect]
     Active Substance: CARBOPLATIN
     Indication: Triple negative breast cancer
     Dosage: TIME INTERVAL: CYCLICAL
     Dates: start: 20220510

REACTIONS (12)
  - Asthenia [Recovering/Resolving]
  - Mucosal inflammation [Recovered/Resolved]
  - Gastrointestinal disorder [Recovered/Resolved]
  - Neuropathy peripheral [Recovering/Resolving]
  - Chest pain [Recovered/Resolved]
  - Tonsillitis [Recovered/Resolved]
  - Cough [Recovering/Resolving]
  - Oedema peripheral [Recovering/Resolving]
  - Dyspnoea [Recovering/Resolving]
  - Febrile bone marrow aplasia [Recovered/Resolved]
  - Neutropenia [Not Recovered/Not Resolved]
  - Anaemia [Not Recovered/Not Resolved]

NARRATIVE: CASE EVENT DATE: 20220101
